FAERS Safety Report 9095605 (Version 2)
Quarter: 2013Q1

REPORT INFORMATION
  Report Type: Spontaneous
  Country: BR (occurrence: BR)
  Receive Date: 20130220
  Receipt Date: 20130326
  Transmission Date: 20140127
  Serious: Yes (Other)
  Sender: FDA-Public Use
  Company Number: PHHY2013BR015277

PATIENT
  Sex: Male

DRUGS (4)
  1. DIOVAN [Suspect]
     Indication: BLOOD PRESSURE
     Dosage: 1 DF (80 MG) DAILY
  2. DIOVAN [Suspect]
     Dosage: 1 DF (160 MG) DAILY
     Dates: start: 201205
  3. JANUMET [Concomitant]
     Indication: DIABETES MELLITUS
     Dosage: 1 DF (850/50MG) DAILY
     Dates: start: 201205
  4. SPIRONOLACTONE [Concomitant]
     Indication: ANTICOAGULANT THERAPY
     Dosage: 25 MG, DAILY
     Route: 048
     Dates: start: 201205

REACTIONS (1)
  - Cerebrovascular accident [Recovering/Resolving]
